FAERS Safety Report 5755212-1 (Version None)
Quarter: 2008Q2

REPORT INFORMATION
  Report Type: 
  Country: None (occurrence: None)
  Receive Date: 20080602
  Receipt Date: 20080521
  Transmission Date: 20081010
  Serious: Yes (Disabling)
  Sender: FDA-Public Use
  Company Number: SE-NOVOPROD-257281

PATIENT
  Age: 8 Year
  Sex: Female
  Weight: 22 kg

DRUGS (1)
  1. NORDITROPIN [Suspect]
     Indication: GROWTH HORMONE DEFICIENCY
     Dosage: .8 MG, QD
     Route: 058
     Dates: start: 20000928, end: 20050220

REACTIONS (2)
  - ALPORT'S SYNDROME [None]
  - LUNG INFECTION [None]
